FAERS Safety Report 6758546-7 (Version None)
Quarter: 2010Q2

REPORT INFORMATION
  Report Type: 
  Country: None (occurrence: None)
  Receive Date: 20100607
  Receipt Date: 20100603
  Transmission Date: 20101027
  Serious: Yes (Other)
  Sender: FDA-Public Use
  Company Number: Z0004231A

PATIENT
  Sex: Female
  Weight: 47.7 kg

DRUGS (6)
  1. PAZOPANIB [Suspect]
     Indication: RENAL CELL CARCINOMA
     Dosage: 800MG PER DAY
     Route: 048
     Dates: start: 20100511
  2. NORVASC [Concomitant]
     Indication: HYPERTENSION
     Dosage: 5MG PER DAY
     Route: 048
     Dates: start: 20090527
  3. KENALOG IN ORABASE [Concomitant]
     Indication: STOMATITIS
     Route: 062
     Dates: start: 20100121
  4. HACHIAZULE [Concomitant]
     Indication: STOMATITIS
     Dosage: 2G AS REQUIRED
     Route: 061
     Dates: start: 20100212
  5. THYRADIN-S [Concomitant]
     Indication: HYPOTHYROIDISM
     Dosage: 25MCG PER DAY
     Route: 048
     Dates: start: 20100212
  6. FLAVITAN [Concomitant]
     Route: 047
     Dates: start: 20101101

REACTIONS (1)
  - HYPERLIPASAEMIA [None]
